FAERS Safety Report 10646408 (Version 1)
Quarter: 2014Q4

REPORT INFORMATION
  Report Type: Spontaneous
  Country: FR (occurrence: FR)
  Receive Date: 20141211
  Receipt Date: 20141211
  Transmission Date: 20150529
  Serious: Yes (Hospitalization)
  Sender: FDA-Public Use
  Company Number: FR-PFIZER INC-2014333302

PATIENT
  Age: 43 Year
  Sex: Female

DRUGS (1)
  1. TAZOCILLINE [Suspect]
     Active Substance: PIPERACILLIN SODIUM\TAZOBACTAM SODIUM
     Indication: WOUND INFECTION PSEUDOMONAS
     Dosage: 4 G, 3X/DAY
     Route: 042
     Dates: start: 20141029, end: 20141118

REACTIONS (4)
  - Agranulocytosis [Recovered/Resolved]
  - Weight decreased [Unknown]
  - Hepatocellular injury [Not Recovered/Not Resolved]
  - Pyrexia [Recovered/Resolved]

NARRATIVE: CASE EVENT DATE: 20141118
